FAERS Safety Report 5988624-1 (Version None)
Quarter: 2008Q4

REPORT INFORMATION
  Report Type: 
  Country: None (occurrence: None)
  Receive Date: 20081210
  Receipt Date: 20081125
  Transmission Date: 20090506
  Serious: Yes (Hospitalization)
  Sender: FDA-Public Use
  Company Number: US-ELI_LILLY_AND_COMPANY-US200809001651

PATIENT
  Sex: Female
  Weight: 68.481 kg

DRUGS (13)
  1. BYETTA [Suspect]
     Dosage: UNK, UNKNOWN
     Dates: start: 20061117
  2. EVISTA [Concomitant]
  3. GLYBURIDE [Concomitant]
  4. NASONEX [Concomitant]
  5. REQUIP [Concomitant]
  6. DIOVAN [Concomitant]
  7. CLARITIN [Concomitant]
  8. PEPCID [Concomitant]
  9. CARAFATE [Concomitant]
  10. CALCIUM [Concomitant]
  11. PREDNISONE TAB [Concomitant]
  12. LORTAB [Concomitant]
  13. CORGARD [Concomitant]

REACTIONS (6)
  - BILE DUCT STENOSIS [None]
  - HEPATIC CIRRHOSIS [None]
  - PANCREATIC DUCT STENOSIS [None]
  - PROCEDURAL PAIN [None]
  - SPLENOMEGALY [None]
  - WEIGHT DECREASED [None]
